FAERS Safety Report 20365162 (Version 2)
Quarter: 2022Q1

REPORT INFORMATION
  Report Type: Other
  Country: US (occurrence: None)
  Receive Date: 20220122
  Receipt Date: 20220215
  Transmission Date: 20220423
  Serious: No
  Sender: FDA-Public Use
  Company Number: US-ROCHE-3005440

PATIENT
  Sex: Female
  Weight: 86.260 kg

DRUGS (8)
  1. OCREVUS [Suspect]
     Active Substance: OCRELIZUMAB
     Indication: Relapsing multiple sclerosis
     Dosage: ONGOING:UNKNOWN;16/JAN/2020
     Route: 042
     Dates: start: 20170629
  2. GABAPENTIN [Concomitant]
     Active Substance: GABAPENTIN
     Dosage: STARTED ABOUT OCT-2021 OR NOV-2021 TAKES IN MORNING AND AFTERNOON
     Route: 048
     Dates: start: 2021
  3. GABAPENTIN [Concomitant]
     Active Substance: GABAPENTIN
     Dosage: STARTED AROUND OCT-2021 OR NOV-2021 TAKES AT NIGHT
     Route: 048
  4. GABAPENTIN [Concomitant]
     Active Substance: GABAPENTIN
     Dosage: STARTED ABOUT 2 YEARS AGO
     Route: 048
  5. BACLOFEN [Concomitant]
     Active Substance: BACLOFEN
     Indication: Muscle spasms
     Dosage: DECREASED IN 2021, AFTER SHE STARTED BOTOX
     Route: 048
     Dates: start: 2021
  6. BACLOFEN [Concomitant]
     Active Substance: BACLOFEN
     Dosage: STARTED 3.5 TO 4 YEARS AGO
     Route: 048
     Dates: end: 202012
  7. BOTOX [Concomitant]
     Active Substance: ONABOTULINUMTOXINA
     Indication: Muscle spasms
     Dosage: ABOUT 5 SHOTS PER LEG MAYBE 5 UNITS PER LEG
     Dates: start: 202012
  8. COVID-19 VACCINE [Concomitant]
     Dosage: 1ST 2 VACCINATIONS JUN-2021 AND JUL-2021, AND BOOSTER 18-DEC-2021.
     Dates: start: 202106, end: 20211218

REACTIONS (5)
  - COVID-19 [Not Recovered/Not Resolved]
  - Weight decreased [Not Recovered/Not Resolved]
  - Muscle spasms [Recovered/Resolved]
  - Fatigue [Unknown]
  - Burning sensation [Recovered/Resolved]

NARRATIVE: CASE EVENT DATE: 20200101
